FAERS Safety Report 8837497 (Version 3)
Quarter: 2014Q2

REPORT INFORMATION
  Report Type: Spontaneous
  Country: US (occurrence: US)
  Receive Date: 20121012
  Receipt Date: 20140529
  Transmission Date: 20141212
  Serious: No
  Sender: FDA-Public Use
  Company Number: US-PFIZER INC-2012250080

PATIENT
  Age: 66 Year
  Sex: Female
  Weight: 52.15 kg

DRUGS (3)
  1. XALKORI [Suspect]
     Indication: LUNG CARCINOMA CELL TYPE UNSPECIFIED STAGE IV
     Dosage: 200 MG, 2X/DAY
     Route: 048
     Dates: end: 2014
  2. HYDROCHLOROT [Concomitant]
     Dosage: 12.5 MG, UNK
  3. BYSTOLIC [Concomitant]
     Dosage: 2.5 MG, UNK

REACTIONS (6)
  - Dysgeusia [Unknown]
  - Dizziness [Unknown]
  - Myalgia [Unknown]
  - Nasopharyngitis [Unknown]
  - Disease progression [Unknown]
  - Lung carcinoma cell type unspecified stage IV [Unknown]
